FAERS Safety Report 8419369 (Version 5)
Quarter: 2014Q3

REPORT INFORMATION
  Report Type: Report from Study
  Country: CA (occurrence: CA)
  Receive Date: 20120221
  Receipt Date: 20140805
  Transmission Date: 20150326
  Serious: Yes (Other)
  Sender: FDA-Public Use
  Company Number: PHHY2011CA75202

PATIENT
  Sex: Female

DRUGS (13)
  1. GILENYA [Suspect]
     Active Substance: FINGOLIMOD HYDROCHLORIDE
     Dosage: 0.5 MG, QOD
     Route: 048
  2. MIRENA [Concomitant]
     Active Substance: LEVONORGESTREL
  3. GILENYA [Suspect]
     Active Substance: FINGOLIMOD HYDROCHLORIDE
     Indication: RELAPSING-REMITTING MULTIPLE SCLEROSIS
     Dosage: 0.5 MG, QD
     Route: 048
     Dates: start: 20110718
  4. LAMICTAL [Concomitant]
     Active Substance: LAMOTRIGINE
  5. ELAVIL [Concomitant]
     Active Substance: AMITRIPTYLINE HYDROCHLORIDE
  6. TYLENOL [Concomitant]
     Active Substance: ACETAMINOPHEN
  7. AVENTYL [Concomitant]
     Dosage: 10 OT, QHS
  8. SYNTHROID [Concomitant]
     Active Substance: LEVOTHYROXINE SODIUM
  9. WELLBUTRIN [Concomitant]
     Active Substance: BUPROPION HYDROCHLORIDE
  10. CELEBREX [Concomitant]
     Active Substance: CELECOXIB
  11. CONCERTA [Concomitant]
     Active Substance: METHYLPHENIDATE HYDROCHLORIDE
  12. VITAMIN D [Concomitant]
     Active Substance: CHOLECALCIFEROL
  13. TRILEPTAL [Concomitant]
     Active Substance: OXCARBAZEPINE

REACTIONS (28)
  - Ocular hyperaemia [Unknown]
  - Muscle spasms [Recovering/Resolving]
  - Paraesthesia [Unknown]
  - Malaise [Unknown]
  - Multiple sclerosis relapse [Recovered/Resolved]
  - Nausea [Unknown]
  - Mood altered [Unknown]
  - Dizziness [Unknown]
  - Drug ineffective [Unknown]
  - Panic attack [Unknown]
  - Blepharospasm [Recovered/Resolved]
  - Hypoaesthesia [Recovered/Resolved]
  - Muscular weakness [Unknown]
  - Prescribed underdose [Unknown]
  - Eye disorder [Unknown]
  - Vertigo [Unknown]
  - Vision blurred [Unknown]
  - Palpitations [Unknown]
  - Dysarthria [Unknown]
  - Dyspnoea [Unknown]
  - Stress [Unknown]
  - Negative thoughts [Recovered/Resolved]
  - Fall [Unknown]
  - Disturbance in attention [Unknown]
  - Urinary retention [Unknown]
  - Self esteem decreased [Unknown]
  - Fatigue [Unknown]
  - Sensory loss [Unknown]

NARRATIVE: CASE EVENT DATE: 2012
